FAERS Safety Report 17309142 (Version 1)
Quarter: 2020Q1

REPORT INFORMATION
  Report Type: Spontaneous
  Country: JP (occurrence: JP)
  Receive Date: 20200123
  Receipt Date: 20200123
  Transmission Date: 20200409
  Serious: Yes (Hospitalization)
  Sender: FDA-Public Use
  Company Number: JP-TEVA-2020-JP-001180J

PATIENT
  Sex: Male

DRUGS (1)
  1. BISOPROLOL FUMARATE TABLET 5MG ^TEVA^ [Suspect]
     Active Substance: BISOPROLOL FUMARATE
     Indication: PRODUCT USED FOR UNKNOWN INDICATION
     Route: 048

REACTIONS (4)
  - Pulse abnormal [Unknown]
  - Blood pressure abnormal [Unknown]
  - Body temperature decreased [Not Recovered/Not Resolved]
  - Cardiac failure acute [Unknown]
